FAERS Safety Report 15632765 (Version 1)
Quarter: 2018Q4

REPORT INFORMATION
  Report Type: Spontaneous
  Country: US (occurrence: US)
  Receive Date: 20181119
  Receipt Date: 20181119
  Transmission Date: 20190205
  Serious: No
  Sender: FDA-Public Use
  Company Number: US-BAYER-2018-214055

PATIENT
  Age: 58 Year
  Sex: Female

DRUGS (1)
  1. BETASERON [Suspect]
     Active Substance: INTERFERON BETA-1B
     Indication: MULTIPLE SCLEROSIS
     Dosage: DAILY DOSE .3 MG

REACTIONS (8)
  - Headache [None]
  - Memory impairment [None]
  - Pain [None]
  - Hot flush [None]
  - Arthralgia [None]
  - Balance disorder [None]
  - Fatigue [None]
  - Fall [None]
